FAERS Safety Report 6415771-2 (Version None)
Quarter: 2009Q4

REPORT INFORMATION
  Report Type: 
  Country: None (occurrence: None)
  Receive Date: 20091022
  Receipt Date: 20091007
  Transmission Date: 20100525
  Serious: Yes (Other)
  Sender: FDA-Public Use
  Company Number: 8053066

PATIENT
  Age: 56 Year
  Sex: Female
  Weight: 88.4 kg

DRUGS (2)
  1. KEPPRA [Suspect]
     Indication: CONVULSION
     Dosage: 500 MG 2/D PO
     Route: 048
     Dates: start: 20090801
  2. FOLIC ACID [Concomitant]

REACTIONS (5)
  - CATECHOLAMINES URINE [None]
  - CREATININE URINE INCREASED [None]
  - METANEPHRINE URINE INCREASED [None]
  - URINE ANALYSIS ABNORMAL [None]
  - VANILLYL MANDELIC ACID URINE INCREASED [None]
